FAERS Safety Report 10451509 (Version 2)
Quarter: 2014Q4

REPORT INFORMATION
  Report Type: Report from Study
  Country: US (occurrence: US)
  Receive Date: 20140913
  Receipt Date: 20141117
  Transmission Date: 20150528
  Serious: Yes (Hospitalization, Other)
  Sender: FDA-Public Use
  Company Number: PHEH2014US017880

PATIENT
  Sex: Female
  Weight: 81.63 kg

DRUGS (1)
  1. TOBI PODHALER [Suspect]
     Active Substance: TOBRAMYCIN
     Indication: CYSTIC FIBROSIS
     Dosage: 112 MG, BID
     Route: 055
     Dates: start: 2013

REACTIONS (4)
  - Hernia [Recovering/Resolving]
  - Cough [Recovered/Resolved]
  - Pain of skin [Recovering/Resolving]
  - Skin necrosis [Unknown]

NARRATIVE: CASE EVENT DATE: 2014
